FAERS Safety Report 5898493-6 (Version None)
Quarter: 2008Q3

REPORT INFORMATION
  Report Type: 
  Country: None (occurrence: None)
  Receive Date: 20080925
  Receipt Date: 20080102
  Transmission Date: 20090109
  Serious: Yes (Disabling, Other)
  Sender: FDA-Public Use
  Company Number: A0697003A

PATIENT
  Age: 24 Year
  Sex: Female
  Weight: 72.7 kg

DRUGS (3)
  1. WELLBUTRIN XL [Suspect]
     Indication: MAJOR DEPRESSION
     Dosage: 450MG PER DAY
     Route: 048
     Dates: start: 20070201, end: 20071123
  2. RITALIN [Suspect]
     Indication: DRUG USE FOR UNKNOWN INDICATION
     Dosage: 40MG PER DAY
     Route: 048
     Dates: end: 20071101
  3. CYMBALTA [Concomitant]
     Dosage: 60MG PER DAY
     Dates: start: 20061201

REACTIONS (2)
  - CONTUSION [None]
  - GRAND MAL CONVULSION [None]
